FAERS Safety Report 5155838-2 (Version None)
Quarter: 2006Q4

REPORT INFORMATION
  Report Type: 
  Country: None (occurrence: None)
  Receive Date: 20061120
  Receipt Date: 20061120
  Transmission Date: 20070319
  Serious: Yes (Other)
  Sender: FDA-Public Use
  Company Number: None

PATIENT
  Age: 53 Year
  Sex: Female
  Weight: 81.6475 kg

DRUGS (1)
  1. METOCLOPRAMIDE [Suspect]
     Indication: HIATUS HERNIA
     Dosage: 1 TABLET   ONCE A DAY  PO
     Route: 048
     Dates: start: 20040801, end: 20061101

REACTIONS (3)
  - ANXIETY [None]
  - DEPRESSION [None]
  - DRUG INEFFECTIVE [None]
